APPROVED DRUG PRODUCT: BEXAROTENE
Active Ingredient: BEXAROTENE
Strength: 1%
Dosage Form/Route: GEL;TOPICAL
Application: A215398 | Product #001 | TE Code: AB
Applicant: AMNEAL PHARMACEUTICALS LLC
Approved: Apr 27, 2022 | RLD: No | RS: No | Type: RX